FAERS Safety Report 13916184 (Version 1)
Quarter: 2017Q3

REPORT INFORMATION
  Report Type: Spontaneous
  Country: US (occurrence: None)
  Receive Date: 20170827
  Receipt Date: 20170827
  Transmission Date: 20171127
  Serious: No
  Sender: FDA-Public Use
  Company Number: None

PATIENT
  Sex: Male

DRUGS (1)
  1. HUMIRA [Suspect]
     Active Substance: ADALIMUMAB
     Indication: PSORIASIS
     Dosage: 2 PENS ON DAY 1,  THEN ONE PEN ON DAY 8
     Route: 058
     Dates: start: 20170731, end: 20170824

REACTIONS (4)
  - Muscular weakness [None]
  - Hypersomnia [None]
  - Dyspnoea [None]
  - Cough [None]
